FAERS Safety Report 20412909 (Version 2)
Quarter: 2022Q1

REPORT INFORMATION
  Report Type: Spontaneous
  Country: US (occurrence: US)
  Receive Date: 20220201
  Receipt Date: 20220214
  Transmission Date: 20220424
  Serious: Yes (Other)
  Sender: FDA-Public Use
  Company Number: US-MALLINCKRODT-T202200386

PATIENT
  Age: 83 Year
  Sex: Male

DRUGS (1)
  1. INOMAX [Suspect]
     Active Substance: NITRIC OXIDE
     Indication: Pulmonary hypertension
     Dosage: UNK, (INHALATION)
     Route: 055

REACTIONS (3)
  - Cardiogenic shock [Unknown]
  - Therapy non-responder [Unknown]
  - Product use issue [Unknown]
